FAERS Safety Report 9890843 (Version 1)
Quarter: 2014Q1

REPORT INFORMATION
  Report Type: Spontaneous
  Country: US (occurrence: None)
  Receive Date: 20140207
  Receipt Date: 20140207
  Transmission Date: 20141002
  Serious: Yes (Death)
  Sender: FDA-Public Use
  Company Number: SYM-2014-15318

PATIENT
  Age: 33 Year
  Sex: Male

DRUGS (6)
  1. DIAZEPAM [Suspect]
  2. QUETIAPINE [Suspect]
  3. OXYMORPHONE [Suspect]
  4. OXYCODONE [Suspect]
  5. MIRTAZAPINE [Suspect]
  6. ALPRAZOLAM [Suspect]

REACTIONS (2)
  - Drug abuse [None]
  - Toxicity to various agents [None]
